FAERS Safety Report 19899645 (Version 1)
Quarter: 2021Q3

REPORT INFORMATION
  Report Type: Spontaneous
  Country: DE (occurrence: DE)
  Receive Date: 20210929
  Receipt Date: 20210929
  Transmission Date: 20211014
  Serious: Yes (Hospitalization)
  Sender: FDA-Public Use
  Company Number: DE-MYLANLABS-2021M1066563

PATIENT
  Age: 90 Year
  Sex: Male
  Weight: 90 kg

DRUGS (13)
  1. ABSTRAL [Concomitant]
     Active Substance: FENTANYL CITRATE
     Dosage: 100 ?G, IF NEEDED, TABLET
     Route: 060
  2. FOLSAEURE [Concomitant]
     Active Substance: FOLIC ACID
     Dosage: 5 MG, 1?0?1?0, TABLETTEN
  3. OMEPRAZOL                          /00661201/ [Concomitant]
     Active Substance: OMEPRAZOLE
     Dosage: 20 MG, 0?0?1?0, TABLETTEN
  4. MOVICOL [Concomitant]
     Active Substance: POLYETHYLENE GLYCOL 3350\POTASSIUM CHLORIDE\SODIUM BICARBONATE\SODIUM CHLORIDE
     Dosage: 1?0?0?0, PULVER
  5. ASPIRIN. [Suspect]
     Active Substance: ASPIRIN
     Indication: PRODUCT USED FOR UNKNOWN INDICATION
     Dosage: 100 MG, 0?0?1?0, TABLETTEN
  6. FENTANYL. [Concomitant]
     Active Substance: FENTANYL
     Dosage: 12 ?/H, SWITCH EVERY 3 DAYS
     Route: 062
  7. METAMIZOL                          /06276701/ [Concomitant]
     Active Substance: METAMIZOLE
     Dosage: 40?40?40?40, TROPFEN
  8. VOMEX A [Concomitant]
     Active Substance: DIMENHYDRINATE
     Dosage: 150 MG, BEI BEDARF
  9. TORASEMID [Concomitant]
     Active Substance: TORSEMIDE
     Dosage: 50 MG, 1?0?0?0, TABLETTEN
  10. METOPROLOL. [Concomitant]
     Active Substance: METOPROLOL
     Dosage: 47.5 MG, 1?0?0?0, RETARD?TABLETTEN
  11. HALDOL [Concomitant]
     Active Substance: HALOPERIDOL
     Dosage: 3?3?3?0, TROPFEN
  12. MIRTAZAPINE. [Suspect]
     Active Substance: MIRTAZAPINE
     Indication: PRODUCT USED FOR UNKNOWN INDICATION
     Dosage: 15 MG, 0?0?0?0.5, TABLETTEN
  13. COLECALCIFEROL [Concomitant]
     Active Substance: CHOLECALCIFEROL
     Dosage: 1000 IE, 0?2?0?0, TABLETTEN

REACTIONS (3)
  - Flank pain [Not Recovered/Not Resolved]
  - Abdominal pain [Not Recovered/Not Resolved]
  - Anaemia [Not Recovered/Not Resolved]
